FAERS Safety Report 17216970 (Version 1)
Quarter: 2019Q4

REPORT INFORMATION
  Report Type: Spontaneous
  Country: GB (occurrence: GB)
  Receive Date: 20191231
  Receipt Date: 20191231
  Transmission Date: 20200122
  Serious: Yes (Other)
  Sender: FDA-Public Use
  Company Number: GB-TEVA-2019-GB-1159743

PATIENT
  Age: 27 Year
  Sex: Female
  Weight: 15 kg

DRUGS (2)
  1. NITROFURANTOIN. [Concomitant]
     Active Substance: NITROFURANTOIN
     Dosage: 2 DOSAGE FORMS 1 DAYS
     Dates: start: 20191018, end: 20191023
  2. METRONIDAZOLE. [Suspect]
     Active Substance: METRONIDAZOLE
     Dosage: 400 MG
     Dates: start: 20191108

REACTIONS (4)
  - Chest discomfort [Recovering/Resolving]
  - Vomiting [Unknown]
  - Urticaria [Recovering/Resolving]
  - Nausea [Recovered/Resolved]

NARRATIVE: CASE EVENT DATE: 20191111
